FAERS Safety Report 8913991 (Version 1)
Quarter: 2012Q4

REPORT INFORMATION
  Report Type: 
  Country: US (occurrence: US)
  Receive Date: 20121119
  Receipt Date: 20121119
  Transmission Date: 20130627
  Serious: Yes (Hospitalization)
  Sender: FDA-Public Use
  Company Number: US-ROXANE LABORATORIES, INC.-2012-RO-02369RO

PATIENT
  Age: 80 Year
  Sex: Male

DRUGS (8)
  1. FUROSEMIDE [Suspect]
     Dates: start: 20120317
  2. SAXAGLIPTIN [Suspect]
     Indication: TYPE 2 DIABETES MELLITUS
     Dates: start: 20100611, end: 20111219
  3. HUMALOG [Suspect]
     Indication: TYPE 2 DIABETES MELLITUS
  4. LANTUS [Suspect]
     Indication: TYPE 2 DIABETES MELLITUS
  5. PLACEBO [Suspect]
     Indication: TYPE 2 DIABETES MELLITUS
  6. METOPROLOL [Suspect]
  7. ASPIRIN [Concomitant]
  8. TERAZOSIN [Concomitant]
     Dates: start: 20110912

REACTIONS (4)
  - Dizziness [Not Recovered/Not Resolved]
  - Asthenia [Unknown]
  - Ventricular extrasystoles [Unknown]
  - Malaise [Unknown]
